FAERS Safety Report 8501503-0 (Version None)
Quarter: 2012Q3

REPORT INFORMATION
  Report Type: 
  Country: None (occurrence: None)
  Receive Date: 20120710
  Receipt Date: 20120702
  Transmission Date: 20120928
  Serious: Yes (Hospitalization)
  Sender: FDA-Public Use
  Company Number: ES-ABBOTT-12P-144-0952145-00

PATIENT
  Age: 50 Year
  Sex: Male

DRUGS (1)
  1. FENOFIBRATE [Suspect]
     Indication: HYPERTRIGLYCERIDAEMIA
     Route: 048
     Dates: start: 20120101

REACTIONS (1)
  - TENDON RUPTURE [None]
